FAERS Safety Report 7144255-1 (Version None)
Quarter: 2010Q4

REPORT INFORMATION
  Report Type: 
  Country: None (occurrence: None)
  Receive Date: 20101208
  Receipt Date: 20101102
  Transmission Date: 20110411
  Serious: No
  Sender: FDA-Public Use
  Company Number: US-BAYER-201023605BCC

PATIENT
  Sex: Female
  Weight: 84.091 kg

DRUGS (5)
  1. ALEVE (CAPLET) [Suspect]
     Indication: ARTHRALGIA
     Dosage: 1-2 PILLS / DAY FOR AT LEAST THREE YEARS
     Route: 048
  2. GLUCOTROL [Concomitant]
  3. AMLODIPINE BESYLATE AND VALSARTAN [Concomitant]
  4. ANTI-DIABETICS [Concomitant]
  5. UNCODEABLE ^UNCLASSIFIABLE^ [Concomitant]

REACTIONS (1)
  - FAECES DISCOLOURED [None]
